FAERS Safety Report 8450635-4 (Version None)
Quarter: 2012Q2

REPORT INFORMATION
  Report Type: 
  Country: None (occurrence: None)
  Receive Date: 20120620
  Receipt Date: 20120620
  Transmission Date: 20120825
  Serious: Yes (Other)
  Sender: FDA-Public Use
  Company Number: DE-BAYER-2012-060714

PATIENT
  Age: 27 Year
  Sex: Female
  Weight: 94 kg

DRUGS (1)
  1. GADAVIST [Suspect]
     Indication: PRODUCT USED FOR UNKNOWN INDICATION
     Dosage: 10 ML, ONCE
     Route: 042

REACTIONS (3)
  - CARDIOVASCULAR INSUFFICIENCY [None]
  - NAUSEA [None]
  - RASH [None]
